FAERS Safety Report 15497820 (Version 1)
Quarter: 2018Q4

REPORT INFORMATION
  Report Type: Spontaneous
  Country: US (occurrence: US)
  Receive Date: 20181015
  Receipt Date: 20181015
  Transmission Date: 20190205
  Serious: No
  Sender: FDA-Public Use
  Company Number: US-PFIZER INC-2018403317

PATIENT
  Age: 59 Year
  Sex: Male
  Weight: 95.24 kg

DRUGS (2)
  1. SPIRONOLACTONE. [Suspect]
     Active Substance: SPIRONOLACTONE
     Indication: HYPERALDOSTERONISM
     Dosage: 25 MG, UNK
  2. SPIRONOLACTONE. [Suspect]
     Active Substance: SPIRONOLACTONE
     Dosage: 150 MG, UNK

REACTIONS (4)
  - Asthenia [Unknown]
  - Peripheral swelling [Recovering/Resolving]
  - Fatigue [Unknown]
  - Loss of personal independence in daily activities [Unknown]
